FAERS Safety Report 19143878 (Version 4)
Quarter: 2021Q2

REPORT INFORMATION
  Report Type: Other
  Country: FR (occurrence: FR)
  Receive Date: 20210416
  Receipt Date: 20210504
  Transmission Date: 20210717
  Serious: Yes (Death, Hospitalization)
  Sender: FDA-Public Use
  Company Number: FR-ROCHE-2810499

PATIENT
  Age: 51 Year
  Sex: Female

DRUGS (5)
  1. CODEINE [Suspect]
     Active Substance: CODEINE
     Indication: SUBSTANCE USE
     Route: 065
  2. METHADONE [Suspect]
     Active Substance: METHADONE HYDROCHLORIDE
     Indication: SUBSTANCE USE
     Route: 065
  3. DIAZEPAM. [Suspect]
     Active Substance: DIAZEPAM
     Indication: SUBSTANCE USE
     Route: 065
  4. PREGABALIN. [Suspect]
     Active Substance: PREGABALIN
     Indication: SUBSTANCE USE
     Route: 065
  5. MORPHINE [Suspect]
     Active Substance: MORPHINE
     Indication: SUBSTANCE USE
     Route: 065

REACTIONS (4)
  - Asphyxia [Fatal]
  - Respiratory depression [Fatal]
  - Intentional product misuse [Fatal]
  - Substance abuse [Fatal]
